FAERS Safety Report 5127151-0 (Version None)
Quarter: 2006Q4

REPORT INFORMATION
  Report Type: 
  Country: None (occurrence: None)
  Receive Date: 20061010
  Receipt Date: 20060928
  Transmission Date: 20070319
  Serious: Yes (Hospitalization, Disabling, Other)
  Sender: FDA-Public Use
  Company Number: 2006034003

PATIENT
  Age: 46 Year
  Sex: Female

DRUGS (2)
  1. ALPRAZOLAM [Suspect]
     Indication: PANIC REACTION
     Dosage: 2 MG (2 MG, 1 IN 1 D), ORAL
     Route: 048
     Dates: start: 19870101
  2. CELEBREX [Suspect]
     Indication: TOOTHACHE
     Dosage: 400 TO 600 MILLIGRAMS (200 MG, 2 TO 3 TIMES A DAY), ORAL
     Route: 048
     Dates: start: 20060901

REACTIONS (5)
  - AMPUTATION [None]
  - IATROGENIC INJURY [None]
  - IMPLANT SITE INFLAMMATION [None]
  - MENISCUS LESION [None]
  - TOOTHACHE [None]
